FAERS Safety Report 7993111-5 (Version None)
Quarter: 2011Q4

REPORT INFORMATION
  Report Type: 
  Country: None (occurrence: None)
  Receive Date: 20111219
  Receipt Date: 20110331
  Transmission Date: 20120403
  Serious: No
  Sender: FDA-Public Use
  Company Number: US-ASTRAZENECA-2011SE18347

PATIENT
  Age: 57 Year
  Sex: Female
  Weight: 75.7 kg

DRUGS (2)
  1. ALLERGY SHOTS [Concomitant]
     Indication: SEASONAL ALLERGY
  2. CRESTOR [Suspect]
     Indication: HYPERCHOLESTEROLAEMIA
     Route: 048
     Dates: start: 20101001

REACTIONS (2)
  - MYALGIA [None]
  - BACK PAIN [None]
